FAERS Safety Report 6021922-4 (Version None)
Quarter: 2008Q4

REPORT INFORMATION
  Report Type: 
  Country: None (occurrence: None)
  Receive Date: 20081229
  Receipt Date: 20081216
  Transmission Date: 20090506
  Serious: Yes (Hospitalization)
  Sender: FDA-Public Use
  Company Number: GB-ROCHE-603692

PATIENT
  Sex: Male

DRUGS (2)
  1. PEGASYS [Suspect]
     Indication: HEPATITIS C
     Dosage: OVERDOSED AT 600 UG AT THE MOST
     Route: 065
  2. PEGASYS [Suspect]
     Route: 065

REACTIONS (2)
  - INJURY [None]
  - OVERDOSE [None]
